FAERS Safety Report 7451939-4 (Version None)
Quarter: 2011Q2

REPORT INFORMATION
  Report Type: 
  Country: None (occurrence: None)
  Receive Date: 20110502
  Receipt Date: 20110419
  Transmission Date: 20111010
  Serious: Yes (Other)
  Sender: FDA-Public Use
  Company Number: PHHY2011KR33102

PATIENT
  Age: 63 Year
  Sex: Male

DRUGS (2)
  1. RIBAVIRIN [Suspect]
     Dosage: 800 MG, QD
     Route: 048
  2. PEGINTERFERON ALFA-2A [Suspect]
     Dosage: 180 UG, QW

REACTIONS (11)
  - ORAL PAIN [None]
  - DIARRHOEA [None]
  - PLATELET COUNT DECREASED [None]
  - INTERSTITIAL LUNG DISEASE [None]
  - BLOOD PRESSURE DECREASED [None]
  - FATIGUE [None]
  - PANCYTOPENIA [None]
  - COUGH [None]
  - WHITE BLOOD CELL COUNT DECREASED [None]
  - HAEMOGLOBIN DECREASED [None]
  - DYSPNOEA EXERTIONAL [None]
